FAERS Safety Report 19676859 (Version 1)
Quarter: 2021Q3

REPORT INFORMATION
  Report Type: Report from Study
  Country: CA (occurrence: CA)
  Receive Date: 20210809
  Receipt Date: 20210809
  Transmission Date: 20211014
  Serious: Yes (Other)
  Sender: FDA-Public Use
  Company Number: CA-BAYER-2021-155079

PATIENT
  Age: 28 Year
  Sex: Female

DRUGS (1)
  1. MIRENA [Suspect]
     Active Substance: LEVONORGESTREL
     Indication: CONTRACEPTION
     Dosage: 20 ?G PER DAY, CONTINUOUSLY
     Route: 015
     Dates: start: 20200904, end: 20210607

REACTIONS (4)
  - Device expulsion [Recovered/Resolved]
  - Pregnancy with contraceptive device [None]
  - Drug ineffective [None]
  - Post abortion haemorrhage [None]

NARRATIVE: CASE EVENT DATE: 2021
